FAERS Safety Report 12441459 (Version 2)
Quarter: 2016Q2

REPORT INFORMATION
  Report Type: Spontaneous
  Country: US (occurrence: US)
  Receive Date: 20160607
  Receipt Date: 20160623
  Transmission Date: 20160815
  Serious: No
  Sender: FDA-Public Use
  Company Number: US-PFIZER INC-2016265907

PATIENT
  Age: 76 Year
  Sex: Female
  Weight: 69 kg

DRUGS (6)
  1. LYRICA [Suspect]
     Active Substance: PREGABALIN
     Indication: HERPES ZOSTER
     Dosage: 100 MG, 2X/DAY
     Dates: start: 201605
  2. OXYCODONE [Concomitant]
     Active Substance: OXYCODONE
  3. ATENOL [Concomitant]
     Active Substance: ATENOLOL
     Dosage: 25 MG, 1X/DAY
  4. LYRICA [Suspect]
     Active Substance: PREGABALIN
     Indication: PAIN
     Dosage: 100 MG, 2X/DAY
     Dates: start: 20160506
  5. SUNDOWN VITAMIN D3 [Concomitant]
     Dosage: 1000 IU, UNK
  6. AMLODIPINE BESYLATE. [Concomitant]
     Active Substance: AMLODIPINE BESYLATE
     Dosage: 5 MG, 1X/DAY

REACTIONS (1)
  - Drug ineffective [Not Recovered/Not Resolved]

NARRATIVE: CASE EVENT DATE: 20160506
